FAERS Safety Report 8555735-6 (Version None)
Quarter: 2012Q3

REPORT INFORMATION
  Report Type: 
  Country: None (occurrence: None)
  Receive Date: 20120801
  Receipt Date: 20120718
  Transmission Date: 20120928
  Serious: No
  Sender: FDA-Public Use
  Company Number: US-009507513-2012SP036308

PATIENT

DRUGS (1)
  1. IMPLANON [Suspect]
     Indication: CONTRACEPTION
     Dosage: FOR UP TO THREE YEARS
     Dates: start: 20120101

REACTIONS (4)
  - ACNE [None]
  - WEIGHT INCREASED [None]
  - LIBIDO DECREASED [None]
  - MENSTRUAL DISORDER [None]
